FAERS Safety Report 21397184 (Version 1)
Quarter: 2022Q3

REPORT INFORMATION
  Report Type: Spontaneous
  Country: US (occurrence: None)
  Receive Date: 20220929
  Receipt Date: 20220929
  Transmission Date: 20221027
  Serious: No
  Sender: FDA-Public Use
  Company Number: None

PATIENT
  Sex: Female

DRUGS (1)
  1. SKYRIZI [Suspect]
     Active Substance: RISANKIZUMAB-RZAA
     Indication: Psoriasis
     Dosage: 150MG/ML EVERY 12 WEEKS UNDER THE SKIN?
     Route: 058
     Dates: start: 20220208

REACTIONS (4)
  - Therapeutic product effect decreased [None]
  - Symptom recurrence [None]
  - Device malfunction [None]
  - Product dose omission issue [None]
